FAERS Safety Report 9563147 (Version 1)
Quarter: 2013Q3

REPORT INFORMATION
  Report Type: Spontaneous
  Country: PR (occurrence: PR)
  Receive Date: 20130927
  Receipt Date: 20130927
  Transmission Date: 20140515
  Serious: No
  Sender: FDA-Public Use
  Company Number: PR-BRISTOL-MYERS SQUIBB COMPANY-17419763

PATIENT
  Age: 71 Year
  Sex: Male

DRUGS (2)
  1. ONGLYZA TABS 5 MG [Suspect]
  2. PLAVIX [Suspect]

REACTIONS (1)
  - Abdominal pain [Unknown]
